FAERS Safety Report 13431121 (Version 2)
Quarter: 2017Q2

REPORT INFORMATION
  Report Type: Spontaneous
  Country: SV (occurrence: SV)
  Receive Date: 20170412
  Receipt Date: 20170510
  Transmission Date: 20170830
  Serious: Yes (Other)
  Sender: FDA-Public Use
  Company Number: PHHY2017SV053551

PATIENT
  Age: 88 Year
  Sex: Female

DRUGS (5)
  1. EUTIROX [Concomitant]
     Active Substance: LEVOTHYROXINE SODIUM
     Indication: HYPOTHYROIDISM
     Dosage: UNK
     Route: 065
  2. DIGOXINA [Concomitant]
     Active Substance: DIGOXIN
     Indication: ATRIAL FIBRILLATION
     Dosage: UNK
     Route: 065
  3. VYMADA [Suspect]
     Active Substance: SACUBITRIL\VALSARTAN
     Indication: CARDIAC FAILURE
     Dosage: 50 MG, QD
     Route: 048
     Dates: start: 20170225, end: 20170323
  4. VASTAREL [Concomitant]
     Active Substance: TRIMETAZIDINE DIHYDROCHLORIDE
     Indication: PRODUCT USED FOR UNKNOWN INDICATION
     Dosage: UNK
     Route: 065
  5. DIGOXINA [Concomitant]
     Active Substance: DIGOXIN
     Dosage: 0.5 DF, UNK
     Route: 065

REACTIONS (4)
  - Dehydration [Unknown]
  - Hypotension [Unknown]
  - Congestive cardiomyopathy [Unknown]
  - Prescribed underdose [Unknown]
